FAERS Safety Report 17912271 (Version 2)
Quarter: 2020Q2

REPORT INFORMATION
  Report Type: Report from Study
  Country: IL (occurrence: IL)
  Receive Date: 20200618
  Receipt Date: 20200624
  Transmission Date: 20200714
  Serious: Yes (Other)
  Sender: FDA-Public Use
  Company Number: IL-KYOWAKIRIN-2020BKK010187

PATIENT

DRUGS (4)
  1. BUROSUMAB [Suspect]
     Active Substance: BUROSUMAB
     Dosage: UNK EVERY 10 DAYS
     Route: 065
  2. BUROSUMAB [Suspect]
     Active Substance: BUROSUMAB
     Indication: HEREDITARY HYPOPHOSPHATAEMIC RICKETS
     Dosage: 10 MG, 1X/2 WEEKS
     Route: 065
     Dates: start: 201808
  3. BUROSUMAB [Suspect]
     Active Substance: BUROSUMAB
     Dosage: UNK, 1X/2 WEEKS
     Route: 065
  4. BUROSUMAB [Suspect]
     Active Substance: BUROSUMAB
     Dosage: 40 MG, 1X/2 WEEKS
     Route: 065

REACTIONS (3)
  - Blood phosphorus decreased [Unknown]
  - Inappropriate schedule of product administration [Unknown]
  - Osteomalacia [Not Recovered/Not Resolved]
